FAERS Safety Report 7183369-7 (Version None)
Quarter: 2010Q4

REPORT INFORMATION
  Report Type: 
  Country: None (occurrence: None)
  Receive Date: 20101210
  Receipt Date: 20101125
  Transmission Date: 20110411
  Serious: Yes (Hospitalization)
  Sender: FDA-Public Use
  Company Number: AUR-APL-2010-02960

PATIENT
  Age: 20 Month
  Sex: Male

DRUGS (1)
  1. LAMOTRIGINE [Suspect]
     Dosage: 10 TABS-ONCE-ORAL
     Route: 048

REACTIONS (10)
  - ACCIDENTAL DRUG INTAKE BY CHILD [None]
  - ATAXIA [None]
  - CONVULSION [None]
  - CRYING [None]
  - DECREASED EYE CONTACT [None]
  - DRUG LEVEL INCREASED [None]
  - MENTAL STATUS CHANGES [None]
  - SLEEP ATTACKS [None]
  - TONIC CLONIC MOVEMENTS [None]
  - VOMITING [None]
